FAERS Safety Report 7489277-6 (Version None)
Quarter: 2011Q2

REPORT INFORMATION
  Report Type: 
  Country: None (occurrence: None)
  Receive Date: 20110518
  Receipt Date: 20110512
  Transmission Date: 20111010
  Serious: Yes (Other)
  Sender: FDA-Public Use
  Company Number: DE-PFIZER INC-2011065209

PATIENT
  Age: 82 Year
  Sex: Female
  Weight: 58 kg

DRUGS (4)
  1. ATORVASTATIN CALCIUM [Suspect]
     Dosage: 10 MG, DAILY
     Dates: start: 20060701, end: 20110201
  2. PENTAERYTHRITOL TETRANITRATE [Concomitant]
     Dosage: 50 MG, DAILY
     Dates: start: 20060101
  3. LEVOTHYROXINE SODIUM [Interacting]
     Indication: HYPOTHYROIDISM
     Dosage: 50 UG, DAILY
     Dates: start: 20110128
  4. ENALAPRIL [Concomitant]
     Dosage: 2.5 MG, DAILY
     Dates: start: 20060101

REACTIONS (6)
  - DRUG INTERACTION [None]
  - HYPOTHYROIDISM [None]
  - ACTIVITIES OF DAILY LIVING IMPAIRED [None]
  - MYALGIA [None]
  - MUSCULOSKELETAL PAIN [None]
  - BLOOD CREATINE PHOSPHOKINASE INCREASED [None]
